FAERS Safety Report 4981289-7 (Version None)
Quarter: 2006Q1

REPORT INFORMATION
  Report Type: 
  Country: None (occurrence: None)
  Receive Date: 20060312
  Receipt Date: 20060403
  Transmission Date: 20060701
  Serious: Yes (Other)
  Sender: FDA-Public Use
  Company Number: 200510091BCA

PATIENT
  Age: 27 Year
  Sex: Male

DRUGS (6)
  1. GAMUNEX [Suspect]
     Indication: GUILLAIN-BARRE SYNDROME
     Dosage: SEE IMAGE
     Route: 042
     Dates: start: 20050201
  2. GAMUNEX [Suspect]
     Indication: GUILLAIN-BARRE SYNDROME
     Dosage: SEE IMAGE
     Route: 042
     Dates: start: 20050201
  3. GAMUNEX [Suspect]
     Indication: GUILLAIN-BARRE SYNDROME
     Dosage: SEE IMAGE
     Route: 042
     Dates: start: 20050203
  4. GAMUNEX [Suspect]
  5. GAMUNEX [Suspect]
  6. GAMIMUNE N 10% [Suspect]
     Indication: GUILLAIN-BARRE SYNDROME
     Dosage: 10 G, TOTAL DAILY, INTRAVNEOUS
     Route: 042
     Dates: start: 20050202

REACTIONS (3)
  - HAEMOLYTIC ANAEMIA [None]
  - PHARMACEUTICAL PRODUCT COMPLAINT [None]
  - RED BLOOD CELL SPHEROCYTES PRESENT [None]
